FAERS Safety Report 8553160-5 (Version None)
Quarter: 2012Q3

REPORT INFORMATION
  Report Type: 
  Country: None (occurrence: None)
  Receive Date: 20120731
  Receipt Date: 20120725
  Transmission Date: 20120928
  Serious: Yes (Other)
  Sender: FDA-Public Use
  Company Number: JP-PFIZER INC-2012180641

PATIENT
  Age: 63 Year
  Sex: Male

DRUGS (1)
  1. TORISEL [Suspect]
     Indication: RENAL CELL CARCINOMA
     Dosage: UNK, WEEKLY
     Route: 042

REACTIONS (3)
  - RENAL CELL CARCINOMA [None]
  - ILEUS [None]
  - DISEASE PROGRESSION [None]
